FAERS Safety Report 19741184 (Version 1)
Quarter: 2021Q3

REPORT INFORMATION
  Report Type: Spontaneous
  Country: US (occurrence: US)
  Receive Date: 20210825
  Receipt Date: 20210825
  Transmission Date: 20211014
  Serious: No
  Sender: FDA-Public Use
  Company Number: US-ACCORD-213233

PATIENT
  Age: 55 Year
  Sex: Female
  Weight: 54.43 kg

DRUGS (3)
  1. ANASTRAZOLE ACCORD [Suspect]
     Active Substance: ANASTROZOLE
     Indication: BREAST CANCER
     Dosage: ONCE A DAY,STRENGTH 1 MG
     Route: 048
     Dates: start: 20201207
  2. ERGOCALCIFEROL. [Concomitant]
     Active Substance: ERGOCALCIFEROL
     Dosage: 5000 UNITS TWICE A DAY
  3. CALCIUM [Concomitant]
     Active Substance: CALCIUM
     Dosage: TWICE A DAY
     Route: 048

REACTIONS (6)
  - Libido increased [Not Recovered/Not Resolved]
  - Product substitution issue [Unknown]
  - Vaginal discharge [Not Recovered/Not Resolved]
  - Anxiety [Not Recovered/Not Resolved]
  - Drug ineffective [Unknown]
  - Product quality issue [Unknown]

NARRATIVE: CASE EVENT DATE: 20201208
